FAERS Safety Report 9406334 (Version 1)
Quarter: 2013Q3

REPORT INFORMATION
  Report Type: Spontaneous
  Country: US (occurrence: US)
  Receive Date: 20130717
  Receipt Date: 20130717
  Transmission Date: 20140515
  Serious: Yes (Death, Other)
  Sender: FDA-Public Use
  Company Number: US-PFIZER INC-2013206055

PATIENT
  Age: 62 Year
  Sex: Female

DRUGS (2)
  1. HEPARIN SODIUM [Suspect]
     Indication: PROPHYLAXIS
     Dosage: UNK
     Route: 041
  2. LOVENOX [Suspect]
     Dosage: UNK

REACTIONS (4)
  - Heparin-induced thrombocytopenia [Fatal]
  - Cerebral infarction [Fatal]
  - Vasospasm [Unknown]
  - Cerebral haemorrhage [Unknown]
